FAERS Safety Report 7945845-6 (Version None)
Quarter: 2011Q4

REPORT INFORMATION
  Report Type: 
  Country: None (occurrence: None)
  Receive Date: 20111129
  Receipt Date: 20111116
  Transmission Date: 20120403
  Serious: Yes (Other)
  Sender: FDA-Public Use
  Company Number: PHEH2011US009578

PATIENT
  Age: 84 Year
  Sex: Male

DRUGS (7)
  1. LEVOTHYROXINE SODIUM [Concomitant]
     Dosage: 88 UG, UNK
  2. LOVASTATIN [Concomitant]
     Dosage: 20 MG, UNK
  3. AMLODIPINE [Concomitant]
     Dosage: 5 MG, UNK
  4. EXELON [Suspect]
     Dosage: 9.5 MG, DAILY
     Route: 062
  5. ASPIRIN [Concomitant]
  6. EXELON [Suspect]
     Dosage: 4.6 MG, DAILY
     Route: 062
  7. NAMENDA [Concomitant]
     Dosage: 10 MG, BID

REACTIONS (7)
  - DEHYDRATION [None]
  - VOMITING [None]
  - APPLICATION SITE IRRITATION [None]
  - VIRAL INFECTION [None]
  - NAUSEA [None]
  - MALAISE [None]
  - APPLICATION SITE ERYTHEMA [None]
